FAERS Safety Report 20795894 (Version 3)
Quarter: 2022Q2

REPORT INFORMATION
  Report Type: Spontaneous
  Country: US (occurrence: US)
  Receive Date: 20220506
  Receipt Date: 20220530
  Transmission Date: 20220721
  Serious: Yes (Hospitalization, Other)
  Sender: FDA-Public Use
  Company Number: US-GLAXOSMITHKLINE-US2022AMR073119

PATIENT

DRUGS (1)
  1. SOTROVIMAB [Suspect]
     Active Substance: SOTROVIMAB
     Indication: COVID-19
     Dosage: 500 MG, Z (ONCE), 500/8 MG/ML
     Route: 041
     Dates: start: 20220120, end: 20220120

REACTIONS (9)
  - Dyspnoea [Recovering/Resolving]
  - Dyspnoea exertional [Recovering/Resolving]
  - Dizziness [Recovering/Resolving]
  - Hypoxia [Recovering/Resolving]
  - Acute respiratory failure [Recovering/Resolving]
  - Pneumonia [Unknown]
  - Respiratory distress [Unknown]
  - Dry skin [Unknown]
  - Skin warm [Unknown]

NARRATIVE: CASE EVENT DATE: 20220120
